FAERS Safety Report 4981153-3 (Version None)
Quarter: 2006Q2

REPORT INFORMATION
  Report Type: 
  Country: None (occurrence: None)
  Receive Date: 20060424
  Receipt Date: 20060321
  Transmission Date: 20061013
  Serious: Yes (Other)
  Sender: FDA-Public Use
  Company Number: FR-BRISTOL-MYERS SQUIBB COMPANY-13323340

PATIENT
  Age: 21 Year
  Sex: Female
  Weight: 56 kg

DRUGS (5)
  1. ABILIFY [Suspect]
     Indication: SCHIZOAFFECTIVE DISORDER
     Route: 048
     Dates: start: 20060307, end: 20060321
  2. LITHIUM [Concomitant]
     Dates: end: 20050101
  3. PAROXETINE HYDROCHLORIDE [Concomitant]
     Indication: DEPRESSION
     Dates: start: 20060103
  4. TERALITHE [Concomitant]
     Indication: AFFECTIVE DISORDER
  5. TERCIAN [Concomitant]
     Indication: ANXIETY
     Route: 048
     Dates: start: 20000101, end: 20060321

REACTIONS (5)
  - ACCOMMODATION DISORDER [None]
  - EXTRAPYRAMIDAL DISORDER [None]
  - RESPIRATORY DISORDER [None]
  - SALIVARY HYPERSECRETION [None]
  - SLEEP DISORDER [None]
